FAERS Safety Report 18049897 (Version 1)
Quarter: 2020Q3

REPORT INFORMATION
  Report Type: Spontaneous
  Country: CA (occurrence: CA)
  Receive Date: 20200721
  Receipt Date: 20200721
  Transmission Date: 20201103
  Serious: Yes (Hospitalization, Disabling)
  Sender: FDA-Public Use
  Company Number: CA-TEVA-2020-CA-1801788

PATIENT
  Age: 15 Year
  Sex: Male
  Weight: 100 kg

DRUGS (5)
  1. IBUPROFEN. [Suspect]
     Active Substance: IBUPROFEN
     Indication: HEADACHE
     Dosage: 1600 MILLIGRAM DAILY;
     Route: 048
  2. ESCITALOPRAM [Concomitant]
     Active Substance: ESCITALOPRAM OXALATE
  3. VYVANSE [Concomitant]
     Active Substance: LISDEXAMFETAMINE DIMESYLATE
  4. RIBOFLAVINE TAB 100MG [Concomitant]
  5. ACETAMINOPHEN. [Suspect]
     Active Substance: ACETAMINOPHEN
     Indication: HEADACHE
     Dosage: 4000 MILLIGRAM DAILY;
     Route: 048

REACTIONS (12)
  - Chest discomfort [Unknown]
  - Medication overuse headache [Unknown]
  - Dizziness [Unknown]
  - Vomiting [Unknown]
  - Dyspnoea [Unknown]
  - Fatigue [Unknown]
  - Nausea [Unknown]
  - Visual impairment [Unknown]
  - Headache [Unknown]
  - Middle insomnia [Unknown]
  - Panic attack [Unknown]
  - Weight increased [Unknown]
